FAERS Safety Report 9667820 (Version 4)
Quarter: 2014Q1

REPORT INFORMATION
  Report Type: Spontaneous
  Country: US (occurrence: US)
  Receive Date: 20131104
  Receipt Date: 20140107
  Transmission Date: 20141002
  Serious: No
  Sender: FDA-Public Use
  Company Number: US-009507513-1311USA000197

PATIENT
  Age: 69 Year
  Sex: Female
  Weight: 63.49 kg

DRUGS (4)
  1. OXYTROL FOR WOMEN [Suspect]
     Indication: BLADDER DISCOMFORT
     Dosage: 1 DF, ONCE
     Route: 062
     Dates: start: 20131006
  2. OXYTROL FOR WOMEN [Suspect]
     Indication: POLLAKIURIA
  3. OXYTROL FOR WOMEN [Suspect]
     Indication: URINARY INCONTINENCE
  4. LISINOPRIL [Concomitant]
     Indication: HYPERTENSION
     Dosage: 10 MG, BID

REACTIONS (5)
  - Headache [Recovered/Resolved]
  - Head discomfort [Recovered/Resolved]
  - Blood blister [Recovered/Resolved]
  - Application site erythema [Recovered/Resolved]
  - Product adhesion issue [Unknown]
